FAERS Safety Report 24853275 (Version 4)
Quarter: 2025Q2

REPORT INFORMATION
  Report Type: Spontaneous
  Country: US (occurrence: US)
  Receive Date: 20250117
  Receipt Date: 20250505
  Transmission Date: 20250717
  Serious: No
  Sender: BIOGEN
  Company Number: US-BIOGEN-2024BI01284890

PATIENT
  Sex: Female

DRUGS (1)
  1. VUMERITY [Suspect]
     Active Substance: DIROXIMEL FUMARATE
     Indication: Multiple sclerosis
     Dosage: ALSO REPORTED ON 01-MAY-2024
     Route: 050
     Dates: start: 20240429

REACTIONS (12)
  - Foot fracture [Unknown]
  - Osteoporosis [Unknown]
  - Depressed mood [Unknown]
  - Visual acuity reduced [Unknown]
  - Memory impairment [Unknown]
  - Fall [Recovered/Resolved]
  - Multiple sclerosis relapse [Recovered/Resolved]
  - Blood folate decreased [Unknown]
  - Abdominal pain upper [Unknown]
  - Nausea [Unknown]
  - Alopecia [Unknown]
  - Blood iron decreased [Unknown]

NARRATIVE: CASE EVENT DATE: 20240101
